FAERS Safety Report 7650992-2 (Version None)
Quarter: 2011Q3

REPORT INFORMATION
  Report Type: 
  Country: None (occurrence: None)
  Receive Date: 20110802
  Receipt Date: 20110725
  Transmission Date: 20111222
  Serious: Yes (Other)
  Sender: FDA-Public Use
  Company Number: SE-PURDUE-GBR-2011-0008580

PATIENT
  Sex: Female

DRUGS (8)
  1. OXYCODONE HYDROCHLORIDE [Suspect]
     Dosage: 10 MG, 1 DF
     Route: 048
     Dates: start: 20110407, end: 20110407
  2. OXYCODONE HYDROCHLORIDE [Suspect]
     Indication: PREMEDICATION
     Dosage: 10 MG, 1 DF
     Route: 048
     Dates: start: 20110324, end: 20110324
  3. KETOGAN NOVUM [Concomitant]
     Dosage: UNK
     Dates: start: 20110407
  4. OXYCODONE HYDROCHLORIDE [Suspect]
     Dosage: 10 MG, 1 DF
     Route: 048
     Dates: start: 20110414, end: 20110414
  5. POSTAFEN                           /00072802/ [Concomitant]
     Dosage: UNK
  6. DIKLOFENAK [Concomitant]
  7. SPASMOFEN [Concomitant]
     Dosage: UNK
     Dates: start: 20110118
  8. MORFIN                             /00036301/ [Concomitant]
     Dosage: UNK
     Dates: start: 20110414

REACTIONS (4)
  - PRURITUS [None]
  - RASH MACULO-PAPULAR [None]
  - URTICARIA [None]
  - HYPOAESTHESIA ORAL [None]
